FAERS Safety Report 14852132 (Version 4)
Quarter: 2018Q2

REPORT INFORMATION
  Report Type: Spontaneous
  Country: DE (occurrence: DE)
  Receive Date: 20180507
  Receipt Date: 20180620
  Transmission Date: 20180711
  Serious: Yes (Hospitalization)
  Sender: FDA-Public Use
  Company Number: DE-B.I. PHARMACEUTICALS,INC./RIDGEFIELD-2018-BI-024470

PATIENT
  Age: 42 Year
  Sex: Male
  Weight: 147.5 kg

DRUGS (3)
  1. TRULICITY [Suspect]
     Active Substance: DULAGLUTIDE
     Indication: TYPE 2 DIABETES MELLITUS
     Route: 058
     Dates: start: 20180301, end: 20180327
  2. JARDIANCE [Suspect]
     Active Substance: EMPAGLIFLOZIN
     Indication: TYPE 2 DIABETES MELLITUS
     Route: 048
     Dates: start: 20180301, end: 20180327
  3. TOUJEO [Concomitant]
     Active Substance: INSULIN GLARGINE
     Indication: PRODUCT USED FOR UNKNOWN INDICATION
     Route: 065
     Dates: start: 2013

REACTIONS (9)
  - Tachycardia [Unknown]
  - Ketoacidosis [Recovered/Resolved]
  - Abdominal pain upper [Unknown]
  - Dyspnoea [Unknown]
  - Vomiting [Unknown]
  - Hyperglycaemia [Unknown]
  - Abdominal rigidity [Unknown]
  - Hypokalaemia [Unknown]
  - General physical health deterioration [Recovering/Resolving]

NARRATIVE: CASE EVENT DATE: 20180327
